FAERS Safety Report 6840109-6 (Version None)
Quarter: 2010Q4

REPORT INFORMATION
  Report Type: 
  Country: None (occurrence: None)
  Receive Date: 20100709
  Receipt Date: 20100616
  Transmission Date: 20110411
  Serious: Yes (Hospitalization, Other)
  Sender: FDA-Public Use
  Company Number: AUR-APL-2010-00452

PATIENT
  Age: 69 Year
  Sex: Female

DRUGS (5)
  1. HYDROCHLOROTHIAZIDE [Suspect]
     Indication: HYPERTENSION
     Dosage: 12.5MG - DAILY - ORAL
     Route: 048
     Dates: start: 20050101
  2. BENICAR [Suspect]
     Indication: HYPERTENSION
     Dosage: 20-40MG - DAILY - ORAL
     Route: 048
     Dates: start: 20050101
  3. BENICAR HCT [Suspect]
     Indication: HYPERTENSION
     Dosage: 40/12.5MG - DAILY - ORAL
     Route: 048
     Dates: start: 20020101, end: 20050101
  4. INSULIN [Concomitant]
  5. ASPIRIN [Concomitant]

REACTIONS (8)
  - ABDOMINAL PAIN UPPER [None]
  - CAROTID ARTERY OCCLUSION [None]
  - DIARRHOEA [None]
  - HEART RATE DECREASED [None]
  - HYPERSENSITIVITY [None]
  - HYPERTENSION [None]
  - HYPOTENSION [None]
  - TRANSIENT ISCHAEMIC ATTACK [None]
